FAERS Safety Report 13970822 (Version 2)
Quarter: 2018Q3

REPORT INFORMATION
  Report Type: Spontaneous
  Country: US (occurrence: US)
  Receive Date: 20170914
  Receipt Date: 20180913
  Transmission Date: 20181010
  Serious: No
  Sender: FDA-Public Use
  Company Number: US-ASTELLAS-2016US047859

PATIENT
  Age: 87 Year
  Sex: Male

DRUGS (2)
  1. XTANDI [Suspect]
     Active Substance: ENZALUTAMIDE
     Indication: PROSTATE CANCER
     Route: 048
     Dates: start: 20160921
  2. XTANDI [Suspect]
     Active Substance: ENZALUTAMIDE
     Route: 048
     Dates: start: 20160929

REACTIONS (14)
  - Underdose [Unknown]
  - Eating disorder [Unknown]
  - Decreased appetite [Unknown]
  - Diarrhoea [Unknown]
  - Throat irritation [Unknown]
  - Dry skin [Unknown]
  - Nausea [Unknown]
  - Amnesia [Unknown]
  - Amnesia [Unknown]
  - Dysphonia [Unknown]
  - Fatigue [Unknown]
  - Cognitive linguistic deficit [Unknown]
  - Visual acuity reduced [Unknown]
  - Pruritus [Unknown]

NARRATIVE: CASE EVENT DATE: 20161117
